FAERS Safety Report 8789813 (Version 1)
Quarter: 2012Q4

REPORT INFORMATION
  Report Type: 
  Country: JP (occurrence: JP)
  Receive Date: 20120917
  Receipt Date: 20120917
  Transmission Date: 20130627
  Serious: Yes (Life-Threatening)
  Sender: FDA-Public Use
  Company Number: JP-ASTRAZENECA-2012SE71891

PATIENT
  Age: 51 Year
  Sex: Female

DRUGS (2)
  1. CRESTOR [Suspect]
     Dosage: 2.5 MG X 16 TABLET
     Route: 048
  2. UNSPECIFIED INGREDIENT [Suspect]

REACTIONS (1)
  - Suicide attempt [Unknown]
